FAERS Safety Report 21592862 (Version 2)
Quarter: 2022Q4

REPORT INFORMATION
  Report Type: Spontaneous
  Country: US (occurrence: US)
  Receive Date: 20221114
  Receipt Date: 20221226
  Transmission Date: 20230113
  Serious: No
  Sender: FDA-Public Use
  Company Number: US-ORGANON-O2211USA000988

PATIENT
  Age: 21 Year
  Sex: Female
  Weight: 164.17 kg

DRUGS (1)
  1. NEXPLANON [Suspect]
     Active Substance: ETONOGESTREL
     Dosage: 68 MILLIGRAM (1 ROD), ONCE IN LEFT ARM
     Route: 059
     Dates: start: 20221004

REACTIONS (3)
  - Implant site fibrosis [Unknown]
  - Device breakage [Not Recovered/Not Resolved]
  - Wrong technique in device usage process [Unknown]

NARRATIVE: CASE EVENT DATE: 20220101
